FAERS Safety Report 6509901-1 (Version None)
Quarter: 2009Q4

REPORT INFORMATION
  Report Type: 
  Country: None (occurrence: None)
  Receive Date: 20091222
  Receipt Date: 20091210
  Transmission Date: 20100525
  Serious: No
  Sender: FDA-Public Use
  Company Number: PHHY2009JP23119

PATIENT
  Age: 77 Year
  Sex: Male

DRUGS (3)
  1. NEORAL [Suspect]
     Indication: NEPHROTIC SYNDROME
     Dosage: 100 MG
     Dates: start: 20080512
  2. NEORAL [Suspect]
     Dosage: 125 MG
     Dates: start: 20080601, end: 20081027
  3. PREDNISOLONE [Concomitant]
     Indication: NEPHROTIC SYNDROME
     Route: 048

REACTIONS (1)
  - MUSCLE MASS [None]
